FAERS Safety Report 8663252 (Version 4)
Quarter: 2013Q2

REPORT INFORMATION
  Report Type: Report from Study
  Country: JP (occurrence: JP)
  Receive Date: 20120713
  Receipt Date: 20130617
  Transmission Date: 20140414
  Serious: Yes (Hospitalization)
  Sender: FDA-Public Use
  Company Number: JP-009507513-1207JPN001449

PATIENT
  Age: 69 Year
  Sex: Female
  Weight: 55 kg

DRUGS (10)
  1. PEGINTRON [Suspect]
     Indication: HEPATITIS C
     Dosage: 80 MICROGRAM, QW
     Route: 058
     Dates: start: 20120604, end: 20120604
  2. REBETOL [Suspect]
     Indication: HEPATITIS C
     Dosage: 600 MG, QD
     Route: 048
     Dates: start: 20120604, end: 20120608
  3. TELAVIC [Suspect]
     Indication: HEPATITIS C
     Dosage: 2250 MG, QD
     Route: 048
     Dates: start: 20120604, end: 20120608
  4. DEPAS [Concomitant]
     Indication: INSOMNIA
     Dosage: UNK, TID
     Route: 048
     Dates: end: 20120622
  5. TALION (BEPOTASTINE BESYLATE) [Concomitant]
     Indication: PROPHYLAXIS
     Dosage: 20 MG, QD
     Route: 048
     Dates: start: 20120604, end: 20120622
  6. RIKKUNSHI-TO [Concomitant]
     Indication: PROPHYLAXIS
     Dosage: 7.5 G, QD
     Route: 048
     Dates: start: 20120604, end: 20120622
  7. BLOPRESS [Concomitant]
     Indication: HYPERTENSION
     Dosage: 8 MG, QD,FOR:POR
     Route: 048
     Dates: start: 20120604, end: 20120622
  8. URSO [Concomitant]
     Indication: HEPATITIS C
     Dosage: 600 MG, QD
     Route: 048
     Dates: start: 20120609, end: 20120622
  9. ADALAT L [Concomitant]
     Dosage: 20 MG, QD
     Route: 048
  10. RENIVACE [Concomitant]
     Dosage: UNK, BID
     Route: 048

REACTIONS (2)
  - Hyperuricaemia [Recovering/Resolving]
  - Renal failure acute [Not Recovered/Not Resolved]
